FAERS Safety Report 7893023-1 (Version None)
Quarter: 2011Q4

REPORT INFORMATION
  Report Type: 
  Country: None (occurrence: None)
  Receive Date: 20111104
  Receipt Date: 20111024
  Transmission Date: 20120403
  Serious: Yes (Hospitalization, Other)
  Sender: FDA-Public Use
  Company Number: HR-JNJFOC-20111012350

PATIENT
  Age: 30 Year
  Sex: Male

DRUGS (2)
  1. RISPERIDONE [Suspect]
     Indication: ACUTE PSYCHOSIS
     Route: 048
     Dates: start: 20020101
  2. HALOPERIDOL [Suspect]
     Indication: ACUTE PSYCHOSIS
     Route: 065

REACTIONS (3)
  - PSYCHOTIC DISORDER [None]
  - TREATMENT NONCOMPLIANCE [None]
  - NEUROLEPTIC MALIGNANT SYNDROME [None]
